FAERS Safety Report 10267346 (Version 2)
Quarter: 2014Q3

REPORT INFORMATION
  Report Type: Spontaneous
  Country: GB (occurrence: GB)
  Receive Date: 20140630
  Receipt Date: 20140709
  Transmission Date: 20150326
  Serious: Yes (Hospitalization, Other)
  Sender: FDA-Public Use
  Company Number: PHFR2014GB004515

PATIENT
  Age: 33 Year
  Sex: Male
  Weight: 95 kg

DRUGS (2)
  1. CLOZARIL [Suspect]
     Active Substance: CLOZAPINE
     Dosage: UNK (DOSE REDUCED)
     Route: 048
     Dates: end: 20140620
  2. CLOZARIL [Suspect]
     Active Substance: CLOZAPINE
     Dosage: 450 MG, UNK
     Route: 048
     Dates: start: 20140420

REACTIONS (13)
  - Creatinine urine increased [Unknown]
  - White blood cell count increased [Unknown]
  - Neutrophil count increased [Unknown]
  - Dermatosis [Unknown]
  - Arrhythmia [Recovered/Resolved]
  - Confusional state [Unknown]
  - Muscular weakness [Unknown]
  - Rhabdomyolysis [Recovered/Resolved]
  - Oedema peripheral [Recovering/Resolving]
  - C-reactive protein increased [Unknown]
  - Convulsion [Recovered/Resolved]
  - Heart rate irregular [Unknown]
  - Blood creatine phosphokinase increased [Recovered/Resolved]

NARRATIVE: CASE EVENT DATE: 20140606
